FAERS Safety Report 4953614-4 (Version None)
Quarter: 2006Q1

REPORT INFORMATION
  Report Type: 
  Country: None (occurrence: None)
  Receive Date: 20060324
  Receipt Date: 20050829
  Transmission Date: 20060701
  Serious: Yes (Hospitalization)
  Sender: FDA-Public Use
  Company Number: US-MERCK-0508USA04767

PATIENT
  Age: 62 Year
  Sex: Female
  Weight: 82 kg

DRUGS (2)
  1. VIOXX [Suspect]
     Indication: OSTEOARTHRITIS
     Route: 048
     Dates: start: 20000523, end: 20010101
  2. VIOXX [Suspect]
     Route: 048
     Dates: start: 20000523, end: 20010101

REACTIONS (1)
  - CEREBROVASCULAR ACCIDENT [None]
